FAERS Safety Report 7929781-7 (Version None)
Quarter: 2011Q4

REPORT INFORMATION
  Report Type: 
  Country: None (occurrence: None)
  Receive Date: 20111121
  Receipt Date: 20111117
  Transmission Date: 20120403
  Serious: Yes (Death, Hospitalization)
  Sender: FDA-Public Use
  Company Number: PHHY2008IE29362

PATIENT
  Sex: Female

DRUGS (3)
  1. CLOZARIL [Suspect]
     Dosage: 37.5 MG/DAY
     Route: 048
     Dates: start: 20111101
  2. CLOZARIL [Suspect]
     Indication: SCHIZOPHRENIA
     Dates: start: 20080131, end: 20100217
  3. CLOZARIL [Suspect]
     Route: 048
     Dates: start: 20111026, end: 20111030

REACTIONS (5)
  - BREAST CANCER METASTATIC [None]
  - METASTASES TO LIVER [None]
  - VOMITING [None]
  - METASTASES TO SPINE [None]
  - PYREXIA [None]
